FAERS Safety Report 14026988 (Version 1)
Quarter: 2017Q3

REPORT INFORMATION
  Report Type: Report from Study
  Country: None (occurrence: CA)
  Receive Date: 20170929
  Receipt Date: 20170929
  Transmission Date: 20171128
  Serious: Yes (Death, Hospitalization, Other)
  Sender: FDA-Public Use
  Company Number: CA-ABBVIE-17K-028-1986679-00

PATIENT
  Sex: Male

DRUGS (1)
  1. HUMIRA [Suspect]
     Active Substance: ADALIMUMAB
     Indication: CROHN^S DISEASE
     Route: 058
     Dates: start: 20090603, end: 2017

REACTIONS (4)
  - Localised infection [Not Recovered/Not Resolved]
  - Drug-induced liver injury [Fatal]
  - Pleural effusion [Not Recovered/Not Resolved]
  - Coma [Fatal]

NARRATIVE: CASE EVENT DATE: 2017
